FAERS Safety Report 24062500 (Version 2)
Quarter: 2024Q3

REPORT INFORMATION
  Report Type: Spontaneous
  Country: FR (occurrence: FR)
  Receive Date: 20240708
  Receipt Date: 20240716
  Transmission Date: 20241017
  Serious: Yes (Life-Threatening, Other)
  Sender: MYLAN
  Company Number: None

PATIENT
  Age: 21 Year
  Sex: Female

DRUGS (2)
  1. QUETIAPINE [Suspect]
     Active Substance: QUETIAPINE
     Indication: Product used for unknown indication
     Dosage: 1200 MILLIGRAM, TOTAL
     Route: 048
     Dates: start: 20240219, end: 20240219
  2. ACETAMINOPHEN [Suspect]
     Active Substance: ACETAMINOPHEN
     Indication: Product used for unknown indication
     Dosage: 16 GRAM
     Route: 048
     Dates: start: 20240219, end: 20240219

REACTIONS (5)
  - Intentional overdose [Recovered/Resolved]
  - Thrombocytopenia [Recovered/Resolved]
  - Poisoning deliberate [Unknown]
  - Productive cough [Recovered/Resolved]
  - Anaemia [Not Recovered/Not Resolved]

NARRATIVE: CASE EVENT DATE: 20240219
